FAERS Safety Report 10184569 (Version 1)
Quarter: 2014Q2

REPORT INFORMATION
  Report Type: Spontaneous
  Country: US (occurrence: US)
  Receive Date: 20140521
  Receipt Date: 20140521
  Transmission Date: 20141212
  Serious: No
  Sender: FDA-Public Use
  Company Number: US-009507513-1405USA007150

PATIENT
  Sex: Male

DRUGS (1)
  1. CLARITIN ORAL SOLUTION [Suspect]
     Indication: PRODUCT USED FOR UNKNOWN INDICATION
     Dosage: A DOSE EVERY 8 HOURS, AT 10:00 A.M. AND AGAIN AT 5:00P.M.
     Route: 048

REACTIONS (1)
  - Accidental overdose [Unknown]
